FAERS Safety Report 9107635 (Version 1)
Quarter: 2013Q1

REPORT INFORMATION
  Report Type: Spontaneous
  Country: US (occurrence: US)
  Receive Date: 20130221
  Receipt Date: 20130221
  Transmission Date: 20140127
  Serious: Yes (Hospitalization, Other)
  Sender: FDA-Public Use
  Company Number: US-BIOGENIDEC-2013BI014952

PATIENT
  Age: 42 Year
  Sex: Female

DRUGS (5)
  1. AVONEX [Suspect]
     Indication: MULTIPLE SCLEROSIS
     Route: 030
     Dates: start: 20120413
  2. KEPPRA [Concomitant]
     Indication: CONVULSION
  3. MEDICATION (NOS) [Concomitant]
     Indication: CONVULSION
  4. TOPAMAX [Concomitant]
     Indication: CONVULSION
  5. FLU SHOT [Concomitant]
     Indication: ANTIVIRAL PROPHYLAXIS
     Dates: start: 2012

REACTIONS (10)
  - Multiple sclerosis relapse [Recovered/Resolved]
  - Convulsion [Recovered/Resolved]
  - Muscle swelling [Not Recovered/Not Resolved]
  - Cough [Not Recovered/Not Resolved]
  - Painful respiration [Not Recovered/Not Resolved]
  - Local swelling [Not Recovered/Not Resolved]
  - Swelling [Not Recovered/Not Resolved]
  - Back pain [Not Recovered/Not Resolved]
  - Pain in extremity [Not Recovered/Not Resolved]
  - Myalgia [Not Recovered/Not Resolved]
